FAERS Safety Report 6329607-1 (Version None)
Quarter: 2009Q3

REPORT INFORMATION
  Report Type: 
  Country: None (occurrence: None)
  Receive Date: 20090826
  Receipt Date: 20090814
  Transmission Date: 20100115
  Serious: Yes (Death)
  Sender: FDA-Public Use
  Company Number: GR-GENENTECH-282385

PATIENT
  Age: 43 Year
  Sex: Female

DRUGS (4)
  1. AVASTIN [Suspect]
     Indication: SARCOMA
     Dosage: 10 MG/KG, Q2W
     Route: 065
  2. DOXORUBICIN HCL [Suspect]
     Indication: SARCOMA
     Dosage: UNK
     Route: 065
  3. DACARBAZINE [Suspect]
     Indication: SARCOMA
     Dosage: UNK
     Route: 065
  4. IFOSFAMIDE [Suspect]
     Indication: SARCOMA
     Dosage: UNK
     Route: 065

REACTIONS (2)
  - ACUTE RESPIRATORY DISTRESS SYNDROME [None]
  - PULMONARY EMBOLISM [None]
